FAERS Safety Report 10514227 (Version 7)
Quarter: 2014Q4

REPORT INFORMATION
  Report Type: Report from Study
  Country: JP (occurrence: JP)
  Receive Date: 20141013
  Receipt Date: 20141205
  Transmission Date: 20150528
  Serious: Yes (Other)
  Sender: FDA-Public Use
  Company Number: JP-AMGEN-JPNCT2014075579

PATIENT
  Age: 66 Year
  Sex: Female
  Weight: 46 kg

DRUGS (25)
  1. EPINASTINE HYDROCHLORIDE. [Concomitant]
     Active Substance: EPINASTINE HYDROCHLORIDE
     Indication: RHINITIS ALLERGIC
     Dosage: 20 MG, QD
     Route: 048
     Dates: start: 19990828
  2. CAMOSTAT MESILATE [Concomitant]
     Active Substance: CAMOSTAT MESYLATE
     Indication: GASTROOESOPHAGEAL REFLUX DISEASE
     Dosage: 100 MG, TID
     Route: 048
     Dates: start: 19990630
  3. CELECOXIB. [Concomitant]
     Active Substance: CELECOXIB
     Indication: OSTEOARTHRITIS
     Dosage: 100 MG, AS NECESSARY
     Route: 048
     Dates: start: 20121102
  4. DICLOFENAC SODIUM. [Concomitant]
     Active Substance: DICLOFENAC SODIUM
     Indication: OSTEOARTHRITIS
     Dosage: 1 MG, AS NECESSARY
     Route: 061
     Dates: start: 20121102, end: 20130121
  5. LOXONIN [Concomitant]
     Active Substance: LOXOPROFEN SODIUM
     Indication: PERIARTHRITIS
     Dosage: 50-60 MG, AS NECESSARY
     Route: 048
     Dates: start: 20130124, end: 20140213
  6. TYLOXAPOL [Concomitant]
     Active Substance: TYLOXAPOL
     Indication: SINUSITIS
     Dosage: 1.25 MUG, AS NECESSARY
     Route: 061
     Dates: start: 20130404, end: 20130502
  7. DENOSUMAB [Suspect]
     Active Substance: DENOSUMAB
     Indication: OSTEOPOROSIS POSTMENOPAUSAL
     Dosage: 1 ML, QD
     Route: 058
     Dates: start: 20131217, end: 20131217
  8. REBAMIPIDE [Concomitant]
     Active Substance: REBAMIPIDE
     Indication: GASTRITIS PROPHYLAXIS
     Dosage: 100 MG, AS NECESSARY
     Route: 048
     Dates: start: 20121102
  9. AMITRIPTYLINE HYDROCHLORIDE. [Concomitant]
     Active Substance: AMITRIPTYLINE HYDROCHLORIDE
     Indication: PERIARTHRITIS
     Dosage: 10 MG, QWK
     Route: 048
     Dates: start: 20130126, end: 20130201
  10. LYSOZYME HYDROCHLORIDE [Concomitant]
     Active Substance: LYSOZYME HYDROCHLORIDE
     Dosage: 90 MG, TID
     Route: 048
     Dates: start: 20130404, end: 20130515
  11. BETAMETHASONE SODIUM PHOSPHATE [Concomitant]
     Active Substance: BETAMETHASONE SODIUM PHOSPHATE
     Indication: SINUSITIS
     Dosage: 1 MG, AS NECESSARY
     Route: 061
     Dates: start: 20130404, end: 20140502
  12. LOXONIN [Concomitant]
     Active Substance: LOXOPROFEN SODIUM
     Indication: SPONDYLOLISTHESIS
  13. LIDOCAINE. [Concomitant]
     Active Substance: LIDOCAINE
     Indication: PERIARTHRITIS
     Dosage: 100 MG, QWK
     Route: 014
     Dates: start: 20130126, end: 20130201
  14. FELBINAC [Concomitant]
     Active Substance: FELBINAC
     Indication: ANAEMIA POSTOPERATIVE
  15. FELBINAC [Concomitant]
     Active Substance: FELBINAC
     Indication: PERIARTHRITIS
     Dosage: 70-140 MG, ONE TIME DOSE
     Dates: start: 20130124, end: 20140110
  16. SITAGLIPTIN PHOSPHATE [Concomitant]
     Active Substance: SITAGLIPTIN PHOSPHATE
     Indication: DIABETES MELLITUS
     Dosage: 50 MG, QD
     Route: 048
     Dates: start: 20120507
  17. FELBINAC [Concomitant]
     Active Substance: FELBINAC
     Indication: OSTEOARTHRITIS
  18. PRONASE [Concomitant]
     Indication: PERIARTHRITIS
     Dosage: 18000 UNIT, TID
     Route: 048
     Dates: start: 20130124, end: 20130125
  19. CALCIUM [Concomitant]
     Active Substance: CALCIUM
     Dosage: 690 MG, UNK
     Route: 048
     Dates: start: 20121102, end: 20140313
  20. VITAMIN D [Concomitant]
     Active Substance: CHOLECALCIFEROL
     Dosage: 600 IU, UNK
     Route: 048
     Dates: start: 20121102, end: 20140313
  21. AMG 785 [Suspect]
     Active Substance: ROMOSOZUMAB
     Indication: OSTEOPOROSIS POSTMENOPAUSAL
     Dosage: 210 MG, QMO
     Route: 058
     Dates: start: 20121214, end: 20131114
  22. FLOMOX                             /01418603/ [Concomitant]
     Indication: SINUSITIS
     Dosage: 100 MG, TID
     Route: 048
     Dates: start: 20130404, end: 20140305
  23. FLOMOX                             /01418603/ [Concomitant]
     Indication: IMPAIRED HEALING
  24. LOXONIN [Concomitant]
     Active Substance: LOXOPROFEN SODIUM
     Indication: PERIODONTITIS
  25. LOXONIN [Concomitant]
     Active Substance: LOXOPROFEN SODIUM
     Indication: IMPAIRED HEALING

REACTIONS (1)
  - Osteonecrosis of jaw [Not Recovered/Not Resolved]

NARRATIVE: CASE EVENT DATE: 20140131
